FAERS Safety Report 22139099 (Version 1)
Quarter: 2023Q1

REPORT INFORMATION
  Report Type: Spontaneous
  Country: ES (occurrence: ES)
  Receive Date: 20230327
  Receipt Date: 20230327
  Transmission Date: 20230417
  Serious: Yes (Death, Hospitalization, Other)
  Sender: FDA-Public Use
  Company Number: ES-AEMPS-1252544

PATIENT
  Age: 87 Year
  Sex: Female

DRUGS (1)
  1. METFORMIN HYDROCHLORIDE [Suspect]
     Active Substance: METFORMIN HYDROCHLORIDE
     Indication: Diabetes mellitus
     Dosage: 850 MILLIGRAM (50 TABLETS)
     Route: 048
     Dates: start: 20200801, end: 20220726

REACTIONS (1)
  - Lactic acidosis [Fatal]

NARRATIVE: CASE EVENT DATE: 20220725
